FAERS Safety Report 4772124-0 (Version None)
Quarter: 2005Q3

REPORT INFORMATION
  Report Type: 
  Country: None (occurrence: None)
  Receive Date: 20050919
  Receipt Date: 20050830
  Transmission Date: 20060218
  Serious: Yes (Death, Hospitalization)
  Sender: FDA-Public Use
  Company Number: US-BOEHRINGER INGELHEIM PHARMACEUTICALS, INC.-2005-BP-15247BP

PATIENT
  Sex: Female

DRUGS (9)
  1. ATROVENT [Suspect]
     Dosage: 500MCG/2.5ML
     Route: 055
     Dates: start: 20000926, end: 20001002
  2. DIAMOX [Suspect]
     Route: 042
     Dates: start: 20000930, end: 20001001
  3. ALBUTEROL [Suspect]
     Dates: start: 20000924, end: 20001001
  4. FENTANYL [Suspect]
     Route: 042
     Dates: start: 20000926
  5. LORAZEPAM [Suspect]
     Route: 042
     Dates: start: 20000926
  6. GATIFLOXACIN [Suspect]
     Route: 042
     Dates: start: 20000925, end: 20001006
  7. INSULIN [Suspect]
     Route: 058
     Dates: start: 20000921, end: 20001002
  8. NICOTINE [Suspect]
     Route: 062
     Dates: start: 20000918, end: 20001009
  9. THEOPHYLLINE [Suspect]
     Route: 042
     Dates: start: 20001001

REACTIONS (12)
  - ACCIDENTAL DEATH [None]
  - ANOXIA [None]
  - BRADYCARDIA [None]
  - CARDIAC FAILURE CONGESTIVE [None]
  - COMA [None]
  - DIABETES MELLITUS [None]
  - FLAIL CHEST [None]
  - PNEUMONIA [None]
  - RIB FRACTURE [None]
  - SEPSIS [None]
  - SKELETAL INJURY [None]
  - SPLENIC RUPTURE [None]
